FAERS Safety Report 7357227-9 (Version None)
Quarter: 2011Q1

REPORT INFORMATION
  Report Type: 
  Country: None (occurrence: None)
  Receive Date: 20110317
  Receipt Date: 20110310
  Transmission Date: 20110831
  Serious: No
  Sender: FDA-Public Use
  Company Number: US-PFIZER INC-2011053767

PATIENT
  Sex: Female
  Weight: 49.887 kg

DRUGS (2)
  1. PREMARIN [Suspect]
     Indication: MENOPAUSAL DISORDER
     Dosage: UNK
     Route: 067
  2. LEVOTHYROXINE [Concomitant]
     Indication: THYROID DISORDER
     Dosage: 25 UG, 1X/DAY

REACTIONS (2)
  - POOR QUALITY DRUG ADMINISTERED [None]
  - DRUG INEFFECTIVE [None]
